FAERS Safety Report 6674934-1 (Version None)
Quarter: 2010Q2

REPORT INFORMATION
  Report Type: 
  Country: None (occurrence: None)
  Receive Date: 20100409
  Receipt Date: 20100330
  Transmission Date: 20101027
  Serious: Yes (Other)
  Sender: FDA-Public Use
  Company Number: DE-JNJFOC-20100306711

PATIENT
  Age: 61 Year
  Sex: Female
  Weight: 73 kg

DRUGS (10)
  1. SIMPONI [Suspect]
     Indication: RHEUMATOID ARTHRITIS
     Route: 058
  2. PREDNISOLONE [Concomitant]
     Indication: RHEUMATOID ARTHRITIS
  3. ENALAPRIL MALEATE [Concomitant]
     Indication: HYPERTENSION
  4. PANTOPRAZOL [Concomitant]
     Indication: ABDOMINAL PAIN UPPER
  5. ARAVA [Concomitant]
     Indication: RHEUMATOID ARTHRITIS
  6. LEVOTHYROXINE SODIUM [Concomitant]
     Indication: GOITRE
  7. CALCIUM SANDOZ [Concomitant]
  8. SIMVADURA [Concomitant]
     Indication: HYPERLIPIDAEMIA
  9. BIOTIN [Concomitant]
  10. BISOHEXAL (HYDROCHLOROTHIAZIDE) [Concomitant]
     Indication: HYPERTENSION

REACTIONS (2)
  - HEADACHE [None]
  - PERSONALITY DISORDER [None]
